FAERS Safety Report 4892726-0 (Version None)
Quarter: 2006Q1

REPORT INFORMATION
  Report Type: 
  Country: None (occurrence: None)
  Receive Date: 20060125
  Receipt Date: 20060125
  Transmission Date: 20060701
  Serious: Yes (Hospitalization)
  Sender: FDA-Public Use
  Company Number: None

PATIENT
  Age: 44 Year
  Sex: Male
  Weight: 76.1 kg

DRUGS (7)
  1. PENTAMIDINE [Suspect]
     Indication: ANTIBIOTIC PROPHYLAXIS
     Dosage: IV
     Route: 042
     Dates: start: 20051021
  2. MYCOPHENOLATE [Concomitant]
  3. PREDNISONE [Concomitant]
  4. PREVACID [Concomitant]
  5. AMLODIPINE [Concomitant]
  6. MAG. OXIDE [Concomitant]
  7. K PHOSPHATE [Concomitant]

REACTIONS (1)
  - PANCREATITIS [None]
